FAERS Safety Report 5209523-9 (Version None)
Quarter: 2007Q1

REPORT INFORMATION
  Report Type: 
  Country: None (occurrence: None)
  Receive Date: 20070111
  Receipt Date: 20070103
  Transmission Date: 20070707
  Serious: Yes (Hospitalization)
  Sender: FDA-Public Use
  Company Number: 2007SP000151

PATIENT
  Age: 59 Year
  Sex: Female

DRUGS (2)
  1. PEGATRON (PEGYLATED INTERFERON ALFA-2B  W/ RIBAVIRIN) [Suspect]
     Indication: DRUG USE FOR UNKNOWN INDICATION
     Dates: end: 20061228
  2. PEGATRON (PEGYLATED INTERFERON ALFA-2B  W/ RIBAVIRIN) [Suspect]
     Indication: DRUG USE FOR UNKNOWN INDICATION
     Dates: end: 20061228

REACTIONS (5)
  - BLOOD POTASSIUM DECREASED [None]
  - CHEST PAIN [None]
  - DEHYDRATION [None]
  - PAIN [None]
  - VOMITING [None]
